FAERS Safety Report 8955415 (Version 1)
Quarter: 2012Q4

REPORT INFORMATION
  Report Type: Spontaneous
  Country: US (occurrence: None)
  Receive Date: 20121205
  Receipt Date: 20121205
  Transmission Date: 20130627
  Serious: No
  Sender: FDA-Public Use
  Company Number: None

PATIENT
  Age: 87 Year
  Sex: Female

DRUGS (3)
  1. ALPRAZOLAM [Suspect]
     Route: 048
  2. HUMAN INSULIN [Suspect]
  3. ZOLPIDEM [Suspect]
     Route: 048

REACTIONS (1)
  - Fall [None]
